FAERS Safety Report 6220881-9 (Version None)
Quarter: 2009Q2

REPORT INFORMATION
  Report Type: 
  Country: None (occurrence: None)
  Receive Date: 20090610
  Receipt Date: 20090608
  Transmission Date: 20091009
  Serious: Yes (Hospitalization, Other)
  Sender: FDA-Public Use
  Company Number: US-ROXANE LABORATORIES, INC.-2009-RO-00562RO

PATIENT
  Age: 15 Year
  Sex: Female
  Weight: 60 kg

DRUGS (4)
  1. FUROSEMIDE [Suspect]
     Indication: WEIGHT DECREASED
  2. IBUPROFEN [Suspect]
     Indication: PHARYNGITIS
  3. SODIUM CHLORIDE [Concomitant]
     Indication: DEHYDRATION
     Route: 042
  4. POTASSIUM CHLORIDE [Concomitant]
     Indication: HYPOKALAEMIA
     Route: 048

REACTIONS (11)
  - DEHYDRATION [None]
  - DRUG ABUSE [None]
  - HEADACHE [None]
  - HYPERCALCIURIA [None]
  - HYPOCHLORAEMIA [None]
  - HYPOKALAEMIA [None]
  - HYPOTENSION [None]
  - METABOLIC ALKALOSIS [None]
  - NOCTURIA [None]
  - RENAL CYST [None]
  - WEIGHT DECREASED [None]
